FAERS Safety Report 4437017-7 (Version None)
Quarter: 2004Q3

REPORT INFORMATION
  Report Type: 
  Country: None (occurrence: None)
  Receive Date: 20040830
  Receipt Date: 20040826
  Transmission Date: 20050211
  Serious: Yes (Hospitalization)
  Sender: FDA-Public Use
  Company Number: FR-MERCK-0408FRA00058

PATIENT
  Age: 82 Year
  Sex: Female

DRUGS (6)
  1. AMIODARONE HYDROCHLORIDE [Concomitant]
     Indication: ARRHYTHMIA
     Route: 048
  2. ENOXAPARIN SODIUM [Concomitant]
     Route: 048
  3. NOROXIN [Suspect]
     Indication: URINARY TRACT INFECTION
     Route: 048
     Dates: start: 20040705, end: 20040721
  4. PRAVASTATIN SODIUM [Concomitant]
     Route: 048
  5. RAMIPRIL [Concomitant]
     Indication: HYPERTENSION
     Route: 048
  6. ZOLPIDEM TARTRATE [Concomitant]
     Route: 048

REACTIONS (1)
  - EPILEPSY [None]
